FAERS Safety Report 4681919-3 (Version None)
Quarter: 2005Q2

REPORT INFORMATION
  Report Type: 
  Country: None (occurrence: None)
  Receive Date: 20050602
  Receipt Date: 20050520
  Transmission Date: 20051028
  Serious: Yes (Hospitalization, Congenital Anomaly)
  Sender: FDA-Public Use
  Company Number: 2005EU001029

PATIENT
  Age: 50 Year
  Sex: Male

DRUGS (8)
  1. PROGRAF [Suspect]
     Indication: RENAL TRANSPLANT
     Dosage: 1.50 MG, BID, ORAL; 0.50 MG, BID, ORAL
     Route: 048
     Dates: start: 20050101
  2. PREDNISOLONE [Concomitant]
  3. ISOKET RETARD (ISOSORBIDE DINITRATE) [Concomitant]
  4. NEBILET (NEBIVOLOL HYDROCHLORIDE) [Concomitant]
  5. LASIX [Concomitant]
  6. OLMESARTAN (OLMESARTAN) [Concomitant]
  7. CLEMASTINE FUMARATE [Concomitant]
  8. ZEFFIX (LAMIVUDINE) [Concomitant]

REACTIONS (2)
  - PHLEBOTHROMBOSIS [None]
  - THROMBOPHLEBITIS [None]
